FAERS Safety Report 5930336-4 (Version None)
Quarter: 2008Q4

REPORT INFORMATION
  Report Type: 
  Country: None (occurrence: None)
  Receive Date: 20081023
  Receipt Date: 20081010
  Transmission Date: 20090506
  Serious: Yes (Other)
  Sender: FDA-Public Use
  Company Number: 1000001408

PATIENT
  Age: 41 Year
  Sex: Male
  Weight: 83 kg

DRUGS (3)
  1. ESCITALOPRAM OXALATE [Suspect]
     Dosage: (ONCE) ,ORAL
     Route: 048
     Dates: start: 20081009, end: 20081009
  2. DOXEPIN HCL [Suspect]
     Dosage: (ONCE) ,ORAL
     Route: 048
     Dates: start: 20081009, end: 20081009
  3. ALCOHOL [Suspect]
     Dosage: (ONCE) ,ORAL
     Route: 048
     Dates: start: 20081009, end: 20081009

REACTIONS (5)
  - HYPOTENSION [None]
  - MYDRIASIS [None]
  - SOPOR [None]
  - SUICIDE ATTEMPT [None]
  - TACHYCARDIA [None]
